FAERS Safety Report 16825639 (Version 1)
Quarter: 2019Q3

REPORT INFORMATION
  Report Type: Spontaneous
  Country: NL (occurrence: NL)
  Receive Date: 20190919
  Receipt Date: 20190919
  Transmission Date: 20191005
  Serious: Yes (Congenital Anomaly, Other)
  Sender: FDA-Public Use
  Company Number: NL-APOTEX-2019AP022431

PATIENT
  Sex: Female

DRUGS (1)
  1. PAROXETINE. [Suspect]
     Active Substance: PAROXETINE
     Indication: MAJOR DEPRESSION
     Dosage: 30 MG, UNK (ONCE DAILY)
     Route: 064

REACTIONS (6)
  - Heart rate irregular [Unknown]
  - Electrocardiogram QT prolonged [Recovered/Resolved]
  - Atrioventricular block second degree [Recovered/Resolved]
  - Foetal exposure during pregnancy [Unknown]
  - Long QT syndrome congenital [Unknown]
  - Bradycardia [Recovered/Resolved]
